FAERS Safety Report 4582710-9 (Version None)
Quarter: 2005Q1

REPORT INFORMATION
  Report Type: 
  Country: None (occurrence: None)
  Receive Date: 20050215
  Receipt Date: 20050126
  Transmission Date: 20050727
  Serious: Yes (Other)
  Sender: FDA-Public Use
  Company Number: JP-BRISTOL-MYERS SQUIBB COMPANY-12858643

PATIENT
  Age: 12 Year
  Sex: Female

DRUGS (4)
  1. IFOMIDE [Suspect]
     Indication: BONE SARCOMA
     Dosage: LAST DOSE ADMINISTERED ON 06-OCT-1999.
     Route: 041
     Dates: start: 19990405, end: 19991006
  2. ADRIACIN [Suspect]
     Indication: BONE SARCOMA
     Dosage: LAST DOSE ADMINISTERED ON 06-OCT-1999
     Route: 041
     Dates: start: 19990405, end: 19991006
  3. CISPLATIN [Concomitant]
  4. METHOTREXATE [Concomitant]

REACTIONS (1)
  - ENCEPHALOPATHY [None]
